FAERS Safety Report 6615545-3 (Version None)
Quarter: 2010Q1

REPORT INFORMATION
  Report Type: 
  Country: None (occurrence: None)
  Receive Date: 20100305
  Receipt Date: 20100222
  Transmission Date: 20100710
  Serious: Yes (Hospitalization, Other)
  Sender: FDA-Public Use
  Company Number: US-ROCHE-678127

PATIENT
  Age: 67 Year
  Sex: Female
  Weight: 68 kg

DRUGS (3)
  1. BLINDED BEVACIZUMAB [Suspect]
     Indication: GLIOBLASTOMA
     Route: 042
     Dates: start: 20091110, end: 20100104
  2. TEMOZOLOMIDE [Suspect]
     Indication: GLIOBLASTOMA
     Route: 048
     Dates: start: 20091110
  3. TEMOZOLOMIDE [Suspect]
     Dosage: CYCLE 2, FROM DAY 1 TO DAY 5.
     Route: 048
     Dates: start: 20100216

REACTIONS (4)
  - CEREBRAL ISCHAEMIA [None]
  - COGNITIVE DISORDER [None]
  - FATIGUE [None]
  - RETINAL DETACHMENT [None]
